FAERS Safety Report 6994224-7 (Version None)
Quarter: 2010Q3

REPORT INFORMATION
  Report Type: 
  Country: None (occurrence: None)
  Receive Date: 20100917
  Receipt Date: 20100601
  Transmission Date: 20110219
  Serious: No
  Sender: FDA-Public Use
  Company Number: US-ASTRAZENECA-2010SE25627

PATIENT
  Age: 39 Year
  Sex: Female

DRUGS (3)
  1. SEROQUEL XR [Suspect]
     Route: 048
  2. ZOLOFT [Concomitant]
  3. LAMICTAL [Concomitant]

REACTIONS (2)
  - HYPERGLYCAEMIA [None]
  - KIDNEY INFECTION [None]
